FAERS Safety Report 10223205 (Version 2)
Quarter: 2014Q2

REPORT INFORMATION
  Report Type: Spontaneous
  Country: US (occurrence: US)
  Receive Date: 20140609
  Receipt Date: 20140609
  Transmission Date: 20141212
  Serious: No
  Sender: FDA-Public Use
  Company Number: US-DRREDDYS-USA/USA/13/0029080

PATIENT
  Age: 29 Year
  Sex: Female
  Weight: 113.3 kg

DRUGS (1)
  1. FEXOFENADINE HCL  OTC [Suspect]
     Indication: PRODUCT USED FOR UNKNOWN INDICATION
     Route: 048
     Dates: start: 20130416, end: 20130416

REACTIONS (3)
  - Diarrhoea [Recovered/Resolved]
  - Headache [Recovered/Resolved]
  - Chest pain [Recovered/Resolved]
